FAERS Safety Report 18464185 (Version 1)
Quarter: 2020Q4

REPORT INFORMATION
  Report Type: Report from Study
  Country: FR (occurrence: FR)
  Receive Date: 20201104
  Receipt Date: 20201104
  Transmission Date: 20210114
  Serious: Yes (Other)
  Sender: FDA-Public Use
  Company Number: FR-JAZZ-2020-FR-007483

PATIENT

DRUGS (4)
  1. METHOTREXATE. [Concomitant]
     Active Substance: METHOTREXATE
     Indication: PROPHYLAXIS AGAINST GRAFT VERSUS HOST DISEASE
  2. DEFITELIO [Suspect]
     Active Substance: DEFIBROTIDE SODIUM
     Indication: PROPHYLAXIS
     Dosage: UNK
     Route: 042
     Dates: start: 20190724, end: 20190812
  3. CYTARABINE. [Concomitant]
     Active Substance: CYTARABINE
     Indication: PRODUCT USED FOR UNKNOWN INDICATION
  4. CHOLURSO [Concomitant]
     Active Substance: URSODIOL
     Indication: PROPHYLAXIS

REACTIONS (2)
  - Acute graft versus host disease [Unknown]
  - Off label use [Unknown]

NARRATIVE: CASE EVENT DATE: 20190724
